FAERS Safety Report 8828191 (Version 1)
Quarter: 2012Q4

REPORT INFORMATION
  Report Type: 
  Country: US (occurrence: US)
  Receive Date: 20121005
  Receipt Date: 20121005
  Transmission Date: 20130627
  Serious: No
  Sender: FDA-Public Use
  Company Number: US-PFIZER INC-2012244324

PATIENT
  Sex: Female

DRUGS (2)
  1. CELEBREX [Suspect]
     Indication: POSTOPERATIVE CARE
     Dosage: 200 mg, 2x/day
     Route: 048
     Dates: start: 201208, end: 20121002
  2. CELEBREX [Suspect]
     Indication: OEDEMA PERIPHERAL

REACTIONS (1)
  - Contusion [Not Recovered/Not Resolved]
